FAERS Safety Report 16415843 (Version 2)
Quarter: 2019Q3

REPORT INFORMATION
  Report Type: Spontaneous
  Country: US (occurrence: US)
  Receive Date: 20190611
  Receipt Date: 20190719
  Transmission Date: 20191004
  Serious: No
  Sender: FDA-Public Use
  Company Number: US-PFIZER INC-2018352715

PATIENT
  Age: 8 Year
  Sex: Male

DRUGS (2)
  1. GENOTROPIN [Suspect]
     Active Substance: SOMATROPIN
     Dosage: 1.2 MG, DAILY
     Dates: start: 20181007
  2. GENOTROPIN [Suspect]
     Active Substance: SOMATROPIN
     Dosage: 1.25 MG, UNK (6 DAYS PER WEEK)

REACTIONS (3)
  - Product prescribing error [Unknown]
  - Product dose omission [Unknown]
  - Device issue [Unknown]
